FAERS Safety Report 7103815-4 (Version None)
Quarter: 2010Q4

REPORT INFORMATION
  Report Type: 
  Country: None (occurrence: None)
  Receive Date: 20101115
  Receipt Date: 20101102
  Transmission Date: 20110411
  Serious: Yes (Hospitalization)
  Sender: FDA-Public Use
  Company Number: US-ELI_LILLY_AND_COMPANY-US201009001875

PATIENT
  Sex: Female

DRUGS (3)
  1. ZYPREXA [Suspect]
     Dosage: 20 MG, EACH EVENING
  2. ZYPREXA ZYDIS [Suspect]
     Dosage: 30 MG, EACH MORNING
  3. ZYPREXA ZYDIS [Suspect]
     Dosage: 10 MG, OTHER

REACTIONS (2)
  - MENTAL DISORDER [None]
  - OVERDOSE [None]
